FAERS Safety Report 4317586-8 (Version None)
Quarter: 2004Q1

REPORT INFORMATION
  Report Type: 
  Country: None (occurrence: None)
  Receive Date: 20040315
  Receipt Date: 20040303
  Transmission Date: 20041129
  Serious: Yes (Death, Hospitalization)
  Sender: FDA-Public Use
  Company Number: JP-JNJFOC-20040300757

PATIENT
  Age: 82 Year
  Sex: Female

DRUGS (10)
  1. OFLOXACIN [Suspect]
     Indication: DRUG USE FOR UNKNOWN INDICATION
     Dates: start: 20031229, end: 20040105
  2. URBANYL (CLOBAZAM) [Suspect]
     Indication: EPILEPSY
     Dosage: 20 MG, ORAL
     Route: 048
     Dates: start: 20031230, end: 20040108
  3. DEPAKENE [Suspect]
     Indication: EPILEPSY
     Dates: start: 20031230, end: 20031231
  4. CLONAZEPAM [Suspect]
     Indication: EPILEPSY
  5. FUNGIZONE [Suspect]
     Indication: DRUG USE FOR UNKNOWN INDICATION
     Dates: start: 20040111, end: 20040112
  6. AUGMENTIN [Suspect]
     Indication: DRUG USE FOR UNKNOWN INDICATION
     Dates: start: 20031223, end: 20040105
  7. NORFLOXACIN [Suspect]
     Indication: DRUG USE FOR UNKNOWN INDICATION
     Dosage: ORAL
     Route: 048
     Dates: start: 20031228, end: 20031229
  8. VASTAREL (TRIMETAZIDINE HYDROCHLORIDE) [Suspect]
     Indication: DRUG USE FOR UNKNOWN INDICATION
     Dosage: ORAL
     Route: 048
  9. LIPANTHYL (FENOFIBRATE) CAPSULES [Suspect]
     Indication: DRUG USE FOR UNKNOWN INDICATION
     Dosage: ORAL
     Route: 048
  10. LASIX [Suspect]
     Indication: DRUG USE FOR UNKNOWN INDICATION
     Dosage: ORAL
     Route: 048

REACTIONS (8)
  - CARDIAC ARREST [None]
  - CONFUSIONAL STATE [None]
  - LOSS OF CONSCIOUSNESS [None]
  - MALAISE [None]
  - METABOLIC ENCEPHALOPATHY [None]
  - OXYGEN SATURATION DECREASED [None]
  - SOMNOLENCE [None]
  - STATUS EPILEPTICUS [None]
